FAERS Safety Report 24823693 (Version 1)
Quarter: 2025Q1

REPORT INFORMATION
  Report Type: Spontaneous
  Country: NL (occurrence: NL)
  Receive Date: 20250109
  Receipt Date: 20250109
  Transmission Date: 20250408
  Serious: Yes (Disabling)
  Sender: TEVA
  Company Number: None

PATIENT
  Age: 53 Year
  Sex: Male
  Weight: 80 kg

DRUGS (1)
  1. QUETIAPINE [Suspect]
     Active Substance: QUETIAPINE
     Indication: Schizophrenia
     Dosage: 1DD 300MG TABLET (BUILD UP DURING THE FIRST FEW DAYS); TABLET FO / BRAND NAME NOT SPECIFIED
     Route: 048
     Dates: start: 20241213

REACTIONS (1)
  - Cerebral infarction [Unknown]
